FAERS Safety Report 9305262 (Version 2)
Quarter: 2013Q2

REPORT INFORMATION
  Report Type: Spontaneous
  Country: CH (occurrence: None)
  Receive Date: 20130520
  Receipt Date: 20130607
  Transmission Date: 20140414
  Serious: Yes (Other)
  Sender: FDA-Public Use
  Company Number: 7211423

PATIENT
  Sex: Male

DRUGS (2)
  1. EUTHYROX [Suspect]
     Indication: HYPOTHYROIDISM
     Dosage: PRODUCT TAKEN BY MOTHER
  2. ABILIFY (ARIPIPRAZOLE) [Suspect]
     Dosage: PRODUCT TAKEN BY MOTHER

REACTIONS (4)
  - Foetal growth restriction [None]
  - Foetal exposure during pregnancy [None]
  - Placental disorder [None]
  - Foetal growth restriction [None]
